FAERS Safety Report 6310083-X (Version None)
Quarter: 2009Q3

REPORT INFORMATION
  Report Type: 
  Country: None (occurrence: None)
  Receive Date: 20090814
  Receipt Date: 20090805
  Transmission Date: 20100115
  Serious: Yes (Hospitalization)
  Sender: FDA-Public Use
  Company Number: US-ABBOTT-09P-163-0589524-00

PATIENT
  Sex: Female
  Weight: 59.02 kg

DRUGS (2)
  1. SYNTHROID [Suspect]
     Indication: HYPOTHYROIDISM
     Dosage: TOOK OFF AND ON
     Dates: end: 20090801
  2. SYNTHROID [Suspect]

REACTIONS (3)
  - ALCOHOLISM [None]
  - DEPRESSION [None]
  - LYMPHADENOPATHY [None]
